FAERS Safety Report 9616601 (Version 3)
Quarter: 2013Q4

REPORT INFORMATION
  Report Type: Spontaneous
  Country: JP (occurrence: JP)
  Receive Date: 20131011
  Receipt Date: 20131031
  Transmission Date: 20140711
  Serious: Yes (Other)
  Sender: FDA-Public Use
  Company Number: JP-OTSUKA-JP-2013-13810

PATIENT
  Age: 77 Year
  Sex: Male
  Weight: 51.5 kg

DRUGS (9)
  1. SAMSCA [Suspect]
     Indication: CARDIAC FAILURE CONGESTIVE
     Dosage: 7.5 MG MILLIGRAM(S), QD
     Route: 048
     Dates: start: 20130816, end: 20130822
  2. SAMSCA [Suspect]
     Dosage: 7.5 MG MILLIGRAM(S), QD
     Route: 048
     Dates: start: 20130826, end: 20130902
  3. HANP [Concomitant]
     Indication: CARDIAC FAILURE CONGESTIVE
     Dosage: 0.025 UG/KG/MIN, DAILY DOSE
     Route: 042
     Dates: start: 20130815, end: 20130819
  4. DOBUPUM [Concomitant]
     Indication: CARDIAC FAILURE CONGESTIVE
     Dosage: 4 UG/KG/MIN, DAILY DOSE
     Route: 042
     Dates: start: 20130815, end: 20130822
  5. DIART [Concomitant]
     Indication: CARDIAC FAILURE CONGESTIVE
     Dosage: 30 MG MILLIGRAM(S), QD
     Route: 048
     Dates: start: 20130820
  6. ENALAPRIL MALEATE [Concomitant]
     Indication: CARDIAC FAILURE CONGESTIVE
     Dosage: 2.5 MG MILLIGRAM(S), QD
     Route: 048
     Dates: start: 20130820
  7. ARTIST [Concomitant]
     Indication: CARDIAC FAILURE CONGESTIVE
     Dosage: 1.25 MG MILLIGRAM(S), QD
     Route: 048
     Dates: start: 20130820, end: 20130826
  8. ARTIST [Concomitant]
     Dosage: 3.75 MG MILLIGRAM(S), QD
     Route: 048
     Dates: start: 20130827, end: 20130902
  9. ARTIST [Concomitant]
     Dosage: 5 MG MILLIGRAM(S), QD
     Route: 048
     Dates: start: 20130903

REACTIONS (4)
  - Disseminated intravascular coagulation [Recovered/Resolved]
  - Hepatic function abnormal [Recovered/Resolved]
  - Hypernatraemia [Recovered/Resolved]
  - Blood urea increased [Unknown]
